FAERS Safety Report 8541896-1 (Version None)
Quarter: 2012Q3

REPORT INFORMATION
  Report Type: 
  Country: None (occurrence: None)
  Receive Date: 20120726
  Receipt Date: 20110909
  Transmission Date: 20120928
  Serious: No
  Sender: FDA-Public Use
  Company Number: US-ASTRAZENECA-2011SE54561

PATIENT
  Age: 52 Year
  Sex: Female

DRUGS (2)
  1. ZOLOFT [Concomitant]
  2. SEROQUEL XR [Suspect]
     Indication: MAJOR DEPRESSION
     Route: 048

REACTIONS (4)
  - ANXIETY [None]
  - DRUG DOSE OMISSION [None]
  - THERAPEUTIC RESPONSE UNEXPECTED [None]
  - ACTIVITIES OF DAILY LIVING IMPAIRED [None]
